FAERS Safety Report 12297054 (Version 2)
Quarter: 2016Q4

REPORT INFORMATION
  Report Type: Report from Study
  Country: CA (occurrence: CA)
  Receive Date: 20160422
  Receipt Date: 20161026
  Transmission Date: 20170207
  Serious: Yes (Hospitalization, Other)
  Sender: FDA-Public Use
  Company Number: CA-GILEAD-2016-0209641

PATIENT
  Age: 62 Year
  Sex: Female

DRUGS (1)
  1. TENOFOVIR DISOPROXIL FUMARATE. [Suspect]
     Active Substance: TENOFOVIR DISOPROXIL FUMARATE
     Indication: HEPATITIS B
     Dosage: UNK
     Route: 048

REACTIONS (5)
  - Vomiting [Unknown]
  - Diarrhoea [Unknown]
  - Chest pain [Unknown]
  - Hepatic cancer [Unknown]
  - Pleural effusion [Unknown]
